FAERS Safety Report 9857989 (Version 3)
Quarter: 2014Q1

REPORT INFORMATION
  Report Type: Spontaneous
  Country: TR (occurrence: TR)
  Receive Date: 20140131
  Receipt Date: 20140307
  Transmission Date: 20141002
  Serious: Yes (Other)
  Sender: FDA-Public Use
  Company Number: TR-AMGEN-TURSP2012014795

PATIENT
  Age: 32 Year
  Sex: Female
  Weight: 50 kg

DRUGS (2)
  1. ENBREL [Suspect]
     Indication: RHEUMATOID ARTHRITIS
     Dosage: 50 MG, WEEKLY
     Route: 058
     Dates: start: 20110606
  2. ENBREL [Suspect]
     Dosage: 50 MG, QWK
     Route: 058

REACTIONS (2)
  - Arthropathy [Recovered/Resolved]
  - Injection site pain [Not Recovered/Not Resolved]
